FAERS Safety Report 17239009 (Version 2)
Quarter: 2020Q3

REPORT INFORMATION
  Report Type: Report from Study
  Country: AU (occurrence: AU)
  Receive Date: 20200106
  Receipt Date: 20200810
  Transmission Date: 20201102
  Serious: Yes (Death)
  Sender: FDA-Public Use
  Company Number: AU-JNJFOC-20191241329

PATIENT
  Age: 60 Year
  Sex: Female

DRUGS (2)
  1. DARATUMUMAB [Suspect]
     Active Substance: DARATUMUMAB
     Indication: PLASMA CELL MYELOMA
     Route: 042
     Dates: start: 20191211, end: 20191219
  2. DARATUMUMAB [Suspect]
     Active Substance: DARATUMUMAB
     Route: 042
     Dates: start: 20191219

REACTIONS (3)
  - Lactic acidosis [Fatal]
  - Infusion related reaction [Fatal]
  - Respiratory failure [Fatal]

NARRATIVE: CASE EVENT DATE: 20191219
